FAERS Safety Report 14322598 (Version 1)
Quarter: 2017Q4

REPORT INFORMATION
  Report Type: Report from Study
  Country: US (occurrence: US)
  Receive Date: 20171225
  Receipt Date: 20171225
  Transmission Date: 20180321
  Serious: Yes (Hospitalization, Other)
  Sender: FDA-Public Use
  Company Number: US-AMGEN-USASL2017189256

PATIENT
  Age: 54 Year
  Sex: Male

DRUGS (1)
  1. ENBREL [Suspect]
     Active Substance: ETANERCEPT
     Indication: ANKYLOSING SPONDYLITIS
     Dosage: UNK UNK, QWK
     Route: 065

REACTIONS (7)
  - Spinal cord abscess [Unknown]
  - Dizziness [Unknown]
  - Decreased immune responsiveness [Unknown]
  - Arthropathy [Unknown]
  - Pneumonia [Unknown]
  - Infection [Unknown]
  - Hypersomnia [Unknown]
